FAERS Safety Report 4681206-3 (Version None)
Quarter: 2005Q2

REPORT INFORMATION
  Report Type: 
  Country: None (occurrence: None)
  Receive Date: 20050602
  Receipt Date: 20050602
  Transmission Date: 20051028
  Serious: No
  Sender: FDA-Public Use
  Company Number: None

PATIENT
  Sex: Female
  Weight: 56 kg

DRUGS (2)
  1. CISPLATIN [Suspect]
     Indication: ANAL CANCER
     Dosage: SEE IMAGE
     Dates: start: 20050426
  2. FLUOROURACIL [Suspect]
     Dosage: SEE IMAGE

REACTIONS (4)
  - CARDIO-RESPIRATORY ARREST [None]
  - DEHYDRATION [None]
  - NAUSEA [None]
  - VOMITING [None]
